FAERS Safety Report 6900028-3 (Version None)
Quarter: 2010Q3

REPORT INFORMATION
  Report Type: 
  Country: None (occurrence: None)
  Receive Date: 20100803
  Receipt Date: 20100712
  Transmission Date: 20110219
  Serious: Yes (Hospitalization)
  Sender: FDA-Public Use
  Company Number: US-ASTRAZENECA-2010SE32304

PATIENT
  Age: 82 Year
  Sex: Male

DRUGS (2)
  1. ZOLADEX [Suspect]
     Indication: PROSTATE CANCER
     Dosage: ON DAY ZERO
     Route: 058
     Dates: start: 20090730
  2. ZOLADEX [Suspect]
     Dosage: ON MONTH 1, 4, 7, AND 10.
     Route: 058
     Dates: end: 20100506

REACTIONS (15)
  - ANAEMIA OF CHRONIC DISEASE [None]
  - BLOOD GLUCOSE DECREASED [None]
  - CARDIAC FAILURE CONGESTIVE [None]
  - CARDIOMEGALY [None]
  - CEREBRAL DISORDER [None]
  - DIALYSIS [None]
  - HAEMORRHAGE [None]
  - HEMIPARESIS [None]
  - HYPERTENSION [None]
  - HYPERTENSIVE ENCEPHALOPATHY [None]
  - MUSCULAR WEAKNESS [None]
  - PULMONARY OEDEMA [None]
  - RENAL FAILURE ACUTE [None]
  - TRANSIENT ISCHAEMIC ATTACK [None]
  - TREMOR [None]
